FAERS Safety Report 4398618-8 (Version None)
Quarter: 2004Q3

REPORT INFORMATION
  Report Type: 
  Country: None (occurrence: None)
  Receive Date: 20040712
  Receipt Date: 20040621
  Transmission Date: 20050211
  Serious: Yes (Other)
  Sender: FDA-Public Use
  Company Number: JP-JNJFOC-20040606650

PATIENT
  Age: 75 Year
  Sex: Female

DRUGS (7)
  1. RISPERDAL [Suspect]
     Indication: HALLUCINATION
     Dosage: 5 MG, 1 IN 1 DAY, ORAL
     Route: 048
     Dates: start: 20040525, end: 20040607
  2. RISPERDAL [Suspect]
     Indication: HALLUCINATION, AUDITORY
     Dosage: 5 MG, 1 IN 1 DAY, ORAL
     Route: 048
     Dates: start: 20040525, end: 20040607
  3. NITRAZEPAM [Concomitant]
  4. DIAZEPAM [Concomitant]
  5. SULPRIDE (SULPIRIDE) [Concomitant]
  6. PEROSPIRONE (ALL OTHER THERAPEUTIC PRODUCTS) [Concomitant]
  7. OLANZAPINE [Concomitant]

REACTIONS (4)
  - ANAEMIA [None]
  - LEUKOPENIA [None]
  - LYMPHOCYTE PERCENTAGE INCREASED [None]
  - THROMBOCYTOPENIA [None]
